FAERS Safety Report 4952314-4 (Version None)
Quarter: 2006Q1

REPORT INFORMATION
  Report Type: 
  Country: None (occurrence: None)
  Receive Date: 20060320
  Receipt Date: 20060309
  Transmission Date: 20060701
  Serious: Yes (Other)
  Sender: FDA-Public Use
  Company Number: 2006033728

PATIENT
  Age: 1 Year
  Sex: Male
  Weight: 9.0719 kg

DRUGS (1)
  1. INFANT'S PEDIACARE DECONGESTANTN AND COUGH DROPS (PSEUDOEPHEDRINE, DEX [Suspect]
     Indication: ACCIDENTAL OVERDOSE
     Dosage: APPROXIMATELY HALF OF THE BOTTLE  ONCE, ORAL
     Route: 048
     Dates: start: 20060309, end: 20060309

REACTIONS (2)
  - ACCIDENTAL DRUG INTAKE BY CHILD [None]
  - SOMNOLENCE [None]
